FAERS Safety Report 6430038-4 (Version None)
Quarter: 2009Q4

REPORT INFORMATION
  Report Type: 
  Country: None (occurrence: None)
  Receive Date: 20091104
  Receipt Date: 20091104
  Transmission Date: 20100525
  Serious: Yes (Other)
  Sender: FDA-Public Use
  Company Number: None

PATIENT
  Age: 24 Year
  Sex: Male
  Weight: 124.7392 kg

DRUGS (1)
  1. EVISTA [Suspect]
     Indication: OESTRADIOL INCREASED
     Dosage: 60MG DAILY PO
     Route: 048

REACTIONS (1)
  - NO ADVERSE EVENT [None]
